FAERS Safety Report 7784318-0 (Version None)
Quarter: 2011Q3

REPORT INFORMATION
  Report Type: 
  Country: None (occurrence: None)
  Receive Date: 20110928
  Receipt Date: 20110920
  Transmission Date: 20111222
  Serious: Yes (Other)
  Sender: FDA-Public Use
  Company Number: PHHY2011JP84323

PATIENT
  Age: 71 Year
  Sex: Male

DRUGS (2)
  1. VOLTAREN [Suspect]
     Dosage: UNK UKN, UNK
     Route: 048
     Dates: start: 20090301, end: 20090501
  2. VOLTAREN [Suspect]
     Dosage: UNK UKN, UNK
     Route: 054
     Dates: start: 20090301, end: 20090501

REACTIONS (1)
  - INTERSTITIAL LUNG DISEASE [None]
